FAERS Safety Report 10869875 (Version 1)
Quarter: 2015Q1

REPORT INFORMATION
  Report Type: Spontaneous
  Country: US (occurrence: US)
  Receive Date: 20150226
  Receipt Date: 20150226
  Transmission Date: 20150721
  Serious: No
  Sender: FDA-Public Use
  Company Number: US-ASTRAZENECA-2013SE63424

PATIENT
  Age: 56 Year
  Sex: Male
  Weight: 108.9 kg

DRUGS (22)
  1. BYETTA [Suspect]
     Active Substance: EXENATIDE
     Indication: DIABETES MELLITUS
     Route: 058
     Dates: start: 2007
  2. LANTUS [Suspect]
     Active Substance: INSULIN GLARGINE
     Route: 065
  3. FAMOTIDINE. [Concomitant]
     Active Substance: FAMOTIDINE
  4. ASPIRIN. [Concomitant]
     Active Substance: ASPIRIN
  5. GABAPENTIN. [Concomitant]
     Active Substance: GABAPENTIN
  6. BYETTA [Suspect]
     Active Substance: EXENATIDE
     Indication: DIABETES MELLITUS
     Route: 058
     Dates: start: 2006
  7. NIASPAN [Concomitant]
     Active Substance: NIACIN
     Dosage: 4 TABS
  8. BYETTA [Suspect]
     Active Substance: EXENATIDE
     Indication: DIABETES MELLITUS
     Route: 058
  9. NIACIN. [Concomitant]
     Active Substance: NIACIN
  10. PIOGLITAZONE [Concomitant]
     Active Substance: PIOGLITAZONE
  11. EXENATIDE [Concomitant]
     Active Substance: EXENATIDE
  12. GEMFIBROZIL. [Concomitant]
     Active Substance: GEMFIBROZIL
  13. XM [Concomitant]
  14. METOPROLOL [Concomitant]
     Active Substance: METOPROLOL
  15. METFORMIN HCL [Concomitant]
     Active Substance: METFORMIN HYDROCHLORIDE
     Indication: DIABETES MELLITUS
     Dosage: DOSE 500MG BID
  16. GLIMEPIRIDE. [Concomitant]
     Active Substance: GLIMEPIRIDE
     Indication: DIABETES MELLITUS
  17. TRICOR [Concomitant]
     Active Substance: FENOFIBRATE
     Indication: DIABETES MELLITUS
  18. ZETIA [Concomitant]
     Active Substance: EZETIMIBE
     Dates: start: 200711
  19. LIPITOR [Concomitant]
     Active Substance: ATORVASTATIN CALCIUM
     Indication: BLOOD CHOLESTEROL
  20. PLAVIX [Concomitant]
     Active Substance: CLOPIDOGREL BISULFATE
  21. LISINOPRIL. [Concomitant]
     Active Substance: LISINOPRIL
  22. ACTOS [Concomitant]
     Active Substance: PIOGLITAZONE HYDROCHLORIDE
     Indication: DIABETES MELLITUS

REACTIONS (7)
  - Injection site haemorrhage [Unknown]
  - Drug ineffective [Not Recovered/Not Resolved]
  - Injection site erythema [Unknown]
  - Decreased appetite [Not Recovered/Not Resolved]
  - Constipation [Recovered/Resolved]
  - Injection site extravasation [Unknown]
  - Injection site pain [Unknown]

NARRATIVE: CASE EVENT DATE: 2007
